FAERS Safety Report 15639758 (Version 2)
Quarter: 2018Q4

REPORT INFORMATION
  Report Type: Report from Study
  Country: CA (occurrence: CA)
  Receive Date: 20181120
  Receipt Date: 20181228
  Transmission Date: 20190205
  Serious: Yes (Death)
  Sender: FDA-Public Use
  Company Number: CA-EMD SERONO-9053757

PATIENT
  Sex: Male
  Weight: 58 kg

DRUGS (3)
  1. BENADRYL [Concomitant]
     Active Substance: DIPHENHYDRAMINE HYDROCHLORIDE
     Indication: PREMEDICATION
     Route: 048
     Dates: start: 20181031
  2. TYLENOL [Concomitant]
     Active Substance: ACETAMINOPHEN
     Indication: PREMEDICATION
     Route: 048
     Dates: start: 20181031
  3. BAVENCIO [Suspect]
     Active Substance: AVELUMAB
     Indication: NEUROENDOCRINE CARCINOMA OF THE SKIN
     Dosage: 10 MG/KG
     Route: 042
     Dates: start: 20181031

REACTIONS (3)
  - Epistaxis [Unknown]
  - Malignant neoplasm progression [Fatal]
  - Hiccups [Unknown]

NARRATIVE: CASE EVENT DATE: 2018
